FAERS Safety Report 7049070-5 (Version None)
Quarter: 2010Q4

REPORT INFORMATION
  Report Type: 
  Country: None (occurrence: None)
  Receive Date: 20101007
  Receipt Date: 20101005
  Transmission Date: 20110411
  Serious: Yes (Other)
  Sender: FDA-Public Use
  Company Number: SP03162

PATIENT
  Age: 28 Year
  Sex: Female
  Weight: 65.7716 kg

DRUGS (4)
  1. COLAZAL [Suspect]
     Indication: PROCTITIS ULCERATIVE
     Dosage: (750 MG,SEE TEXT),ORAL
     Route: 048
     Dates: start: 20000101
  2. BALSALAZIDE DISODIUM [Suspect]
     Indication: PROCTITIS ULCERATIVE
     Dosage: (750MG,SEE TEXT),ORAL
     Route: 048
  3. CANASA(SUPPOSITORY) [Concomitant]
  4. MULTI-VITAMIN [Concomitant]

REACTIONS (5)
  - ABORTION SPONTANEOUS [None]
  - CONDITION AGGRAVATED [None]
  - DRUG EXPOSURE DURING PREGNANCY [None]
  - PREGNANCY [None]
  - PROCTITIS ULCERATIVE [None]
